FAERS Safety Report 5856791-6 (Version None)
Quarter: 2008Q3

REPORT INFORMATION
  Report Type: 
  Country: None (occurrence: None)
  Receive Date: 20080821
  Receipt Date: 20080811
  Transmission Date: 20090109
  Serious: Yes (Hospitalization, Disabling, Other)
  Sender: FDA-Public Use
  Company Number: DSJ-2008-09668

PATIENT
  Age: 79 Year
  Sex: Female
  Weight: 85.3 kg

DRUGS (7)
  1. OLMESARTAN MEDOXOMIL [Suspect]
     Indication: ESSENTIAL HYPERTENSION
     Dosage: 20 MG (20 MG, 1 IN 1 D), PER ORAL
     Route: 048
     Dates: start: 20070122
  2. NOVORAPID 30 MIX (INSULIN ASPART) (INSULIN ASPART) [Suspect]
     Dosage: 40 IU (20 IU, 2 IN 1 D), SUBCUTANEOUS; 20 IU (20 IU, 1 IN 1 D) ,SUBCUTANEOUS
     Route: 058
     Dates: end: 20080316
  3. NOVORAPID 30 MIX (INSULIN ASPART) (INSULIN ASPART) [Suspect]
     Dosage: 40 IU (20 IU, 2 IN 1 D), SUBCUTANEOUS; 20 IU (20 IU, 1 IN 1 D) ,SUBCUTANEOUS
     Route: 058
     Dates: start: 20080317
  4. MEVALOTIN (PRAVASTATIN SODIUM) (PRAVASTATIN SODIUM) [Concomitant]
  5. BLOPRESS (CANDESARTAN CILEXETIL) (CANDESARTAN CILEXETIL) [Concomitant]
  6. CARDENALIN (DOXAZOSIN MESILATE) (DOXAZOSIN MESILATE) [Concomitant]
  7. BAYASPIRIN (ACETYLSALICYLIC ACID) (ACETYLSALICYLIC ACID) [Concomitant]

REACTIONS (5)
  - FALL [None]
  - GLYCOSYLATED HAEMOGLOBIN INCREASED [None]
  - HYPOGLYCAEMIA UNAWARENESS [None]
  - JOINT DISLOCATION [None]
  - SYNCOPE [None]
